FAERS Safety Report 18382709 (Version 1)
Quarter: 2020Q4

REPORT INFORMATION
  Report Type: Spontaneous
  Country: US (occurrence: US)
  Receive Date: 20201014
  Receipt Date: 20201014
  Transmission Date: 20210114
  Serious: No
  Sender: FDA-Public Use
  Company Number: US-ALKERMES INC.-ALK-2020-004482

PATIENT
  Age: 43 Year
  Sex: Male
  Weight: 95.24 kg

DRUGS (1)
  1. VIVITROL [Suspect]
     Active Substance: NALTREXONE
     Indication: ALCOHOLISM
     Dosage: 380 MILLIGRAM, QMO
     Route: 030
     Dates: start: 20201008

REACTIONS (6)
  - Restlessness [Unknown]
  - Back pain [Unknown]
  - Injection site reaction [Unknown]
  - Injection site pain [Unknown]
  - Hypersomnia [Recovered/Resolved]
  - Dizziness [Unknown]

NARRATIVE: CASE EVENT DATE: 20201008
